FAERS Safety Report 25045376 (Version 1)
Quarter: 2025Q1

REPORT INFORMATION
  Report Type: Report from Study
  Country: US (occurrence: US)
  Receive Date: 20250306
  Receipt Date: 20250306
  Transmission Date: 20250408
  Serious: Yes (Other)
  Sender: ALNYLAM PHARMACEUTICALS
  Company Number: US-ALNYLAM PHARMACEUTICALS, INC.-ALN-2025-001394

PATIENT

DRUGS (1)
  1. AMVUTTRA [Suspect]
     Active Substance: VUTRISIRAN
     Indication: Hereditary neuropathic amyloidosis
     Route: 065
     Dates: start: 20230206, end: 20230206

REACTIONS (5)
  - Osteomyelitis [Unknown]
  - Localised infection [Unknown]
  - Fall [Unknown]
  - Peripheral swelling [Unknown]
  - Onychomadesis [Unknown]

NARRATIVE: CASE EVENT DATE: 20250222
